FAERS Safety Report 4482772-3 (Version None)
Quarter: 2004Q3

REPORT INFORMATION
  Report Type: 
  Country: None (occurrence: None)
  Receive Date: 20040921
  Receipt Date: 20040524
  Transmission Date: 20050211
  Serious: Yes (Hospitalization)
  Sender: FDA-Public Use
  Company Number: 163-20785-04050589 (0)

PATIENT
  Age: 58 Year
  Sex: Female

DRUGS (12)
  1. THALOMID [Suspect]
     Indication: MULTIPLE MYELOMA
     Dosage: 200 MG, DAILY, ORAL
     Route: 048
     Dates: end: 20040419
  2. MELPHALAN (MELPHALAN) [Suspect]
     Indication: MULTIPLE MYELOMA
     Dosage: 250 MG, DAILY, INTRAVENOUS
     Route: 042
     Dates: start: 20040427, end: 20040427
  3. CEFEPIME (CEFEPIME) [Concomitant]
  4. DIFLUCAN [Concomitant]
  5. ACYCLOVIR [Concomitant]
  6. TEQUIN [Concomitant]
  7. PROTONIX [Concomitant]
  8. FOLIC ACID [Concomitant]
  9. LEXAPRO [Concomitant]
  10. OXYCONTIN [Concomitant]
  11. ATIVAN [Concomitant]
  12. REGLAN [Concomitant]

REACTIONS (7)
  - DEHYDRATION [None]
  - DIARRHOEA [None]
  - FEBRILE NEUTROPENIA [None]
  - MUCOSAL INFLAMMATION [None]
  - NAUSEA [None]
  - STAPHYLOCOCCAL BACTERAEMIA [None]
  - VOMITING [None]
